FAERS Safety Report 4521108-6 (Version None)
Quarter: 2004Q4

REPORT INFORMATION
  Report Type: 
  Country: None (occurrence: None)
  Receive Date: 20041203
  Receipt Date: 20041122
  Transmission Date: 20050328
  Serious: Yes (Hospitalization)
  Sender: FDA-Public Use
  Company Number: 2004-BP-12191BP

PATIENT
  Age: 81 Year
  Sex: Male

DRUGS (10)
  1. MICARDIS [Suspect]
     Indication: CEREBROVASCULAR ACCIDENT PROPHYLAXIS
     Dates: start: 20020808
  2. MICARDIS [Suspect]
     Indication: MYOCARDIAL INFARCTION
     Dates: start: 20020808
  3. RAMIPRIL [Suspect]
     Indication: CEREBROVASCULAR ACCIDENT PROPHYLAXIS
     Dates: start: 20020808
  4. RAMIPRIL [Suspect]
     Indication: MYOCARDIAL INFARCTION
     Dates: start: 20020808
  5. BETALOC (METOPROLOL TARTRATE) (NR) [Concomitant]
  6. ASA (ACETYLSALICYLIC ACID) (NR) [Concomitant]
  7. DIURETIC (NR) [Concomitant]
  8. NITRATES (NR) [Concomitant]
  9. STATINS (NR) [Concomitant]
  10. VITAMIN B, 6 +12 (NR) [Concomitant]

REACTIONS (3)
  - ASTHENIA [None]
  - FATIGUE [None]
  - RENAL IMPAIRMENT [None]
